FAERS Safety Report 19212453 (Version 1)
Quarter: 2021Q2

REPORT INFORMATION
  Report Type: Other
  Country: GB (occurrence: GB)
  Receive Date: 20210504
  Receipt Date: 20210504
  Transmission Date: 20210717
  Serious: Yes (Life-Threatening, Hospitalization)
  Sender: FDA-Public Use
  Company Number: GB-NOSTRUM LABORATORIES, INC.-2110183

PATIENT
  Age: 49 Year
  Sex: Female

DRUGS (6)
  1. QUETIAPINE. [Concomitant]
     Active Substance: QUETIAPINE
     Route: 048
  2. MIRTAZAPINE. [Concomitant]
     Active Substance: MIRTAZAPINE
     Route: 048
  3. CANAGLIFLOZIN [Concomitant]
     Active Substance: CANAGLIFLOZIN
     Route: 048
  4. ESZOPICLONE. [Interacting]
     Active Substance: ESZOPICLONE
     Route: 048
  5. METFORMIN HYDROCHLORIDE EXTENDED?RELEASE [Suspect]
     Active Substance: METFORMIN HYDROCHLORIDE
     Indication: TYPE 2 DIABETES MELLITUS
     Route: 048
  6. GLICLAZIDE [Concomitant]
     Active Substance: GLICLAZIDE
     Route: 048

REACTIONS (7)
  - Multi-organ disorder [Recovered/Resolved]
  - Acute kidney injury [Unknown]
  - Euglycaemic diabetic ketoacidosis [Recovered/Resolved]
  - Lactic acidosis [Recovered/Resolved]
  - Tracheostomy [Recovered/Resolved]
  - Rhabdomyolysis [Recovered/Resolved]
  - Acute respiratory failure [Recovered/Resolved]
